FAERS Safety Report 4295307-5 (Version None)
Quarter: 2004Q1

REPORT INFORMATION
  Report Type: 
  Country: None (occurrence: None)
  Receive Date: 20040211
  Receipt Date: 20040129
  Transmission Date: 20041129
  Serious: Yes (Other)
  Sender: FDA-Public Use
  Company Number: 2004-BP-00684NB

PATIENT
  Age: 73 Year
  Sex: Female

DRUGS (3)
  1. MICARDIS [Suspect]
     Indication: HYPERTENSION
     Dosage: 40 MG (NR) PO
     Route: 048
     Dates: start: 20031224, end: 20040122
  2. NORVASC (TA) [Concomitant]
  3. TAGAMET (TA) [Concomitant]

REACTIONS (1)
  - HEPATIC FUNCTION ABNORMAL [None]
